FAERS Safety Report 10368475 (Version 2)
Quarter: 2014Q3

REPORT INFORMATION
  Report Type: Report from Study
  Country: GB (occurrence: GB)
  Receive Date: 20140807
  Receipt Date: 20140826
  Transmission Date: 20150326
  Serious: Yes (Death, Hospitalization)
  Sender: FDA-Public Use
  Company Number: GB-BRISTOL-MYERS SQUIBB COMPANY-21260898

PATIENT
  Age: 33 Year
  Sex: Male

DRUGS (7)
  1. PREGABALIN. [Concomitant]
     Active Substance: PREGABALIN
  2. IPILIMUMAB [Suspect]
     Active Substance: IPILIMUMAB
     Indication: METASTATIC MALIGNANT MELANOMA
     Route: 042
     Dates: start: 20130909, end: 20131111
  3. OXYCODONE [Concomitant]
     Active Substance: OXYCODONE
  4. LORAZEPAM. [Concomitant]
     Active Substance: LORAZEPAM
  5. DICLOFENAC [Concomitant]
     Active Substance: DICLOFENAC
  6. ZOPICLONE [Concomitant]
     Active Substance: ZOPICLONE
  7. TRAZODONE HYDROCHLORIDE. [Concomitant]
     Active Substance: TRAZODONE HYDROCHLORIDE

REACTIONS (4)
  - Sepsis [Fatal]
  - Dyspnoea [Fatal]
  - Malignant neoplasm progression [Fatal]
  - Pyrexia [Recovered/Resolved]

NARRATIVE: CASE EVENT DATE: 20140725
